FAERS Safety Report 9407376 (Version 1)
Quarter: 2013Q3

REPORT INFORMATION
  Report Type: Spontaneous
  Country: IT (occurrence: IT)
  Receive Date: 20130718
  Receipt Date: 20130718
  Transmission Date: 20140515
  Serious: Yes (Hospitalization)
  Sender: FDA-Public Use
  Company Number: IT-SANOFI-AVENTIS-2013SA069944

PATIENT
  Age: 43 Year
  Sex: Female

DRUGS (1)
  1. FERLIXIT [Suspect]
     Indication: IRON DEFICIENCY
     Dosage: FORM: SOLUTION DOSE:2 UNIT(S)
     Route: 042
     Dates: start: 20130612, end: 20130612

REACTIONS (7)
  - Oedema peripheral [Recovered/Resolved]
  - Blood pressure increased [Recovered/Resolved]
  - Abdominal pain upper [Recovered/Resolved]
  - Malaise [Recovered/Resolved]
  - Urticaria [Recovered/Resolved]
  - Oedema peripheral [Recovered/Resolved]
  - Sensory disturbance [Recovered/Resolved]
